FAERS Safety Report 8170704-6 (Version None)
Quarter: 2012Q1

REPORT INFORMATION
  Report Type: 
  Country: None (occurrence: None)
  Receive Date: 20120228
  Receipt Date: 20120216
  Transmission Date: 20120608
  Serious: Yes (Other)
  Sender: FDA-Public Use
  Company Number: CA-ELI_LILLY_AND_COMPANY-CA201202005336

PATIENT
  Age: 68 Year
  Sex: Male

DRUGS (4)
  1. CIALIS [Suspect]
     Dosage: 20 MG, UNK
     Dates: start: 20120201
  2. CIALIS [Suspect]
     Dosage: 20 MG, UNK
  3. PANTOPRAZOLE [Concomitant]
     Dosage: 40 MG, TID
  4. CIALIS [Suspect]
     Indication: ERECTILE DYSFUNCTION
     Dosage: 5 MG, UNK
     Dates: start: 20111001

REACTIONS (1)
  - GASTRIC HAEMORRHAGE [None]
